FAERS Safety Report 9527552 (Version 1)
Quarter: 2013Q3

REPORT INFORMATION
  Report Type: Spontaneous
  Country: US (occurrence: None)
  Receive Date: 20130913
  Receipt Date: 20130913
  Transmission Date: 20140515
  Serious: Yes (Other)
  Sender: FDA-Public Use
  Company Number: FK201304168

PATIENT
  Age: 36 Year
  Sex: Male

DRUGS (6)
  1. HEPARIN [Suspect]
     Indication: PRODUCT USED FOR UNKNOWN INDICATION
     Dates: start: 20130812
  2. HEPARIN [Suspect]
     Indication: DIAGNOSTIC PROCEDURE
     Dates: start: 20130812
  3. HEPARIN [Suspect]
     Indication: PERCUTANEOUS CORONARY INTERVENTION
     Dates: start: 20130812
  4. ANGIOMAX [Suspect]
     Indication: PERCUTANEOUS CORONARY INTERVENTION
     Route: 042
     Dates: start: 20130812
  5. GLYCOPROTEIN 11B/111A [Concomitant]
  6. CLOPIDOGREL (CLOPIDOGREL) [Concomitant]

REACTIONS (4)
  - Coronary artery thrombosis [None]
  - Coronary artery dissection [None]
  - Procedural complication [None]
  - Thrombosis in device [None]
